FAERS Safety Report 12218867 (Version 1)
Quarter: 2016Q1

REPORT INFORMATION
  Report Type: Spontaneous
  Country: CA (occurrence: CA)
  Receive Date: 20160329
  Receipt Date: 20160329
  Transmission Date: 20160526
  Serious: Yes (Hospitalization, Other)
  Sender: FDA-Public Use
  Company Number: CA-APOTEX-2016AP007358

PATIENT
  Age: 21 Year
  Sex: Male

DRUGS (17)
  1. APO-MIDAZOLAM INJECTABLE (APOTEX STD) [Suspect]
     Active Substance: MIDAZOLAM HYDROCHLORIDE
     Dosage: UNK
     Route: 051
  2. ISOFLURANE. [Suspect]
     Active Substance: ISOFLURANE
     Dosage: UNK
     Route: 051
  3. APO-MIDAZOLAM INJECTABLE (APOTEX STD) [Suspect]
     Active Substance: MIDAZOLAM HYDROCHLORIDE
     Indication: STATUS EPILEPTICUS
     Dosage: UNK, UNKNOWN
     Route: 065
  4. APO-LEVETIRACETAM [Suspect]
     Active Substance: LEVETIRACETAM
     Indication: STATUS EPILEPTICUS
     Dosage: UNK UNK, UNKNOWN
     Route: 065
  5. PROPOFOL. [Suspect]
     Active Substance: PROPOFOL
     Indication: STATUS EPILEPTICUS
     Dosage: UNK, UNKNOWN
     Route: 065
  6. PROPOFOL. [Suspect]
     Active Substance: PROPOFOL
     Dosage: UNK
     Route: 051
  7. LACOSAMIDE [Suspect]
     Active Substance: LACOSAMIDE
     Dosage: UNK
     Route: 051
  8. PHENOBARBITAL. [Concomitant]
     Active Substance: PHENOBARBITAL
     Indication: STATUS EPILEPTICUS
     Dosage: 100 MG, Q.12H (SERUM LEVEL 109?136 LMOL/L)
     Route: 042
  9. METHYLPREDNISOLONE. [Concomitant]
     Active Substance: METHYLPREDNISOLONE
     Indication: STATUS EPILEPTICUS
     Dosage: UNK, UNKNOWN
     Route: 042
  10. APO-VALPROIC [Suspect]
     Active Substance: VALPROIC ACID
     Indication: STATUS EPILEPTICUS
     Dosage: UNK UNK, UNKNOWN
     Route: 065
  11. APO-VALPROIC [Suspect]
     Active Substance: VALPROIC ACID
     Dosage: UNK
     Route: 051
  12. LACOSAMIDE [Suspect]
     Active Substance: LACOSAMIDE
     Indication: STATUS EPILEPTICUS
     Dosage: UNK, UNKNOWN
     Route: 065
  13. PHENYTOIN. [Suspect]
     Active Substance: PHENYTOIN
     Indication: STATUS EPILEPTICUS
     Dosage: UNK, UNKNOWN
     Route: 065
  14. PHENYTOIN. [Suspect]
     Active Substance: PHENYTOIN
     Dosage: UNK
     Route: 051
  15. IMMUNE GLOBULIN [Concomitant]
     Active Substance: HUMAN IMMUNOGLOBULIN G
     Indication: STATUS EPILEPTICUS
     Dosage: UNK, UNKNOWN
     Route: 042
  16. APO-LEVETIRACETAM [Suspect]
     Active Substance: LEVETIRACETAM
     Dosage: UNK
     Route: 051
  17. ISOFLURANE. [Suspect]
     Active Substance: ISOFLURANE
     Indication: ANAESTHESIA
     Dosage: UNK UNK, UNKNOWN
     Route: 065

REACTIONS (9)
  - Brain oedema [Unknown]
  - Intestinal ischaemia [Unknown]
  - Systemic inflammatory response syndrome [Unknown]
  - Hypotension [Unknown]
  - Superinfection [Unknown]
  - Ileus [Unknown]
  - Diabetes insipidus [Unknown]
  - Intestinal ulcer [None]
  - Clostridium difficile infection [Unknown]
